FAERS Safety Report 10392365 (Version 3)
Quarter: 2014Q3

REPORT INFORMATION
  Report Type: Spontaneous
  Country: US (occurrence: None)
  Receive Date: 20120817
  Receipt Date: 20140815
  Transmission Date: 20150326
  Serious: Yes (Other)
  Sender: FDA-Public Use
  Company Number: ADR-2012-01004

PATIENT
  Sex: Male

DRUGS (3)
  1. DILAUDID [Concomitant]
     Active Substance: HYDROMORPHONE HYDROCHLORIDE
  2. COMPOUNDED BACLOFEN INTRATHECAL [Suspect]
     Active Substance: BACLOFEN
     Indication: PAIN
  3. COMPOUNDED BACLOFEN INTRATHECAL [Suspect]
     Active Substance: BACLOFEN

REACTIONS (11)
  - Gastrointestinal pain [None]
  - Incorrect dose administered [None]
  - Abdominal pain upper [None]
  - Nausea [None]
  - Asthenia [None]
  - Drug withdrawal syndrome [None]
  - Headache [None]
  - Loss of consciousness [None]
  - Hot flush [None]
  - Pain [None]
  - Diarrhoea [None]
